FAERS Safety Report 23700856 (Version 1)
Quarter: 2024Q2

REPORT INFORMATION
  Report Type: Report from Study
  Country: US (occurrence: US)
  Receive Date: 20240403
  Receipt Date: 20240403
  Transmission Date: 20240716
  Serious: Yes (Death, Hospitalization)
  Sender: FDA-Public Use
  Company Number: US-INSMED-2023-04812-USAA

PATIENT
  Sex: Female

DRUGS (1)
  1. ARIKAYCE [Suspect]
     Active Substance: AMIKACIN
     Indication: Mycobacterial infection
     Dosage: 590 MILLIGRAM, QD
     Route: 055
     Dates: start: 20221015

REACTIONS (5)
  - Death [Fatal]
  - Gastrointestinal tube insertion [Unknown]
  - Malaise [Unknown]
  - Product dose omission issue [Unknown]
  - Intentional dose omission [Unknown]
